FAERS Safety Report 5543917-7 (Version None)
Quarter: 2007Q4

REPORT INFORMATION
  Report Type: 
  Country: None (occurrence: None)
  Receive Date: 20071210
  Receipt Date: 20061219
  Transmission Date: 20080405
  Serious: No
  Sender: FDA-Public Use
  Company Number: US-AMGEN-KDL200182

PATIENT
  Sex: Female
  Weight: 56.3 kg

DRUGS (7)
  1. ENBREL [Suspect]
     Indication: RHEUMATOID ARTHRITIS
     Route: 058
     Dates: start: 20011001
  2. METHOTREXATE [Concomitant]
  3. VITAMIN B-12 [Concomitant]
  4. PLAQUENIL [Concomitant]
  5. EVISTA [Concomitant]
  6. LOPID [Concomitant]
  7. CELEBREX [Concomitant]

REACTIONS (5)
  - BACK PAIN [None]
  - INJECTION SITE PAIN [None]
  - JOINT SURGERY [None]
  - RADICULOPATHY [None]
  - SYNOVITIS [None]
